FAERS Safety Report 8332983-1 (Version None)
Quarter: 2012Q2

REPORT INFORMATION
  Report Type: 
  Country: None (occurrence: None)
  Receive Date: 20120503
  Receipt Date: 20120426
  Transmission Date: 20120825
  Serious: Yes (Hospitalization, Other)
  Sender: FDA-Public Use
  Company Number: PHHY2012CA036700

PATIENT
  Sex: Male

DRUGS (1)
  1. EXJADE [Suspect]
     Indication: IRON OVERLOAD
     Dosage: 3000 MG, DAILY

REACTIONS (4)
  - RENAL FAILURE ACUTE [None]
  - TOOTH INFECTION [None]
  - BLOOD PRESSURE DECREASED [None]
  - STAPHYLOCOCCAL INFECTION [None]
